FAERS Safety Report 4996954-5 (Version None)
Quarter: 2006Q2

REPORT INFORMATION
  Report Type: 
  Country: None (occurrence: None)
  Receive Date: 20060508
  Receipt Date: 20060508
  Transmission Date: 20061013
  Serious: Yes (Other)
  Sender: FDA-Public Use
  Company Number: None

PATIENT
  Sex: Female
  Weight: 61.2356 kg

DRUGS (1)
  1. EFFEXOR XR [Suspect]
     Indication: DEPRESSION
     Dosage: 150MG  ONCE A DAY  PO
     Route: 048
     Dates: start: 19950101, end: 20060427

REACTIONS (11)
  - CHILLS [None]
  - DIZZINESS [None]
  - DRUG WITHDRAWAL SYNDROME [None]
  - IMPAIRED WORK ABILITY [None]
  - MALAISE [None]
  - MUSCLE SPASMS [None]
  - NAUSEA [None]
  - TREATMENT NONCOMPLIANCE [None]
  - TREMOR [None]
  - UTERINE HAEMORRHAGE [None]
  - VERTIGO [None]
